FAERS Safety Report 20450902 (Version 1)
Quarter: 2022Q1

REPORT INFORMATION
  Report Type: Spontaneous
  Country: JP (occurrence: JP)
  Receive Date: 20220209
  Receipt Date: 20220209
  Transmission Date: 20220423
  Serious: Yes (Other)
  Sender: FDA-Public Use
  Company Number: JP-PFIZER INC-202101700621

PATIENT
  Age: 82 Year
  Sex: Female

DRUGS (2)
  1. INLYTA [Suspect]
     Active Substance: AXITINIB
     Indication: Renal cancer
     Dosage: 1 MG, 2X/DAY
     Route: 048
  2. BAVENCIO [Concomitant]
     Active Substance: AVELUMAB
     Indication: Renal cancer
     Dosage: UNK

REACTIONS (2)
  - Rheumatoid arthritis [Unknown]
  - Off label use [Unknown]
